FAERS Safety Report 6287936-4 (Version None)
Quarter: 2009Q3

REPORT INFORMATION
  Report Type: 
  Country: None (occurrence: None)
  Receive Date: 20090729
  Receipt Date: 20090720
  Transmission Date: 20100115
  Serious: Yes (Other)
  Sender: FDA-Public Use
  Company Number: US-JNJFOC-20090706684

PATIENT
  Age: 34 Year

DRUGS (6)
  1. REMICADE [Suspect]
     Indication: CROHN'S DISEASE
     Route: 042
  2. REMICADE [Suspect]
     Indication: COLITIS ULCERATIVE
     Route: 042
  3. CIMZIA [Suspect]
     Indication: COLITIS ULCERATIVE
  4. CIMZIA [Suspect]
     Indication: CROHN'S DISEASE
     Dosage: FOR 6 MONTHS ANFTER INFLIXIMAB TREATMENT ENDED
  5. HUMIRA [Suspect]
     Indication: CROHN'S DISEASE
  6. HUMIRA [Suspect]
     Indication: COLITIS ULCERATIVE

REACTIONS (1)
  - ADENOCARCINOMA [None]
